FAERS Safety Report 6600190-6 (Version None)
Quarter: 2010Q1

REPORT INFORMATION
  Report Type: 
  Country: None (occurrence: None)
  Receive Date: 20100224
  Receipt Date: 20100203
  Transmission Date: 20100710
  Serious: Yes (Life-Threatening, Hospitalization)
  Sender: FDA-Public Use
  Company Number: B0629505A

PATIENT
  Sex: Female

DRUGS (11)
  1. ARTIST [Suspect]
     Indication: DRUG USE FOR UNKNOWN INDICATION
     Dosage: 2.5MG TWICE PER DAY
     Route: 065
     Dates: end: 20091212
  2. SUNRYTHM [Suspect]
     Indication: DRUG USE FOR UNKNOWN INDICATION
     Dosage: 50MG TWICE PER DAY
  3. OPALMON [Concomitant]
     Route: 065
     Dates: start: 20091204
  4. WARFARIN SODIUM [Concomitant]
     Dates: start: 20091204
  5. CELECOXIB [Concomitant]
     Route: 065
     Dates: start: 20091208
  6. MAGMITT [Concomitant]
     Route: 065
     Dates: start: 20091208
  7. ALFAROL [Concomitant]
     Route: 065
     Dates: start: 20091208
  8. BONALON [Concomitant]
     Route: 065
     Dates: start: 20091208
  9. HEPARIN [Concomitant]
     Route: 065
     Dates: start: 20091208
  10. VICCILLIN [Concomitant]
     Route: 065
  11. PARIET [Concomitant]
     Route: 065
     Dates: start: 20091208

REACTIONS (7)
  - ARRHYTHMIA [None]
  - BLOOD PRESSURE DECREASED [None]
  - BRADYCARDIA [None]
  - DEPRESSED LEVEL OF CONSCIOUSNESS [None]
  - RESPIRATORY ARREST [None]
  - VENTRICULAR FIBRILLATION [None]
  - VENTRICULAR TACHYCARDIA [None]
